FAERS Safety Report 20720714 (Version 4)
Quarter: 2022Q2

REPORT INFORMATION
  Report Type: Spontaneous
  Country: HU (occurrence: HU)
  Receive Date: 20220418
  Receipt Date: 20220604
  Transmission Date: 20220721
  Serious: Yes (Hospitalization, Other)
  Sender: FDA-Public Use
  Company Number: HU-NOVARTISPH-NVSC2022HU086116

PATIENT
  Age: 28 Year
  Sex: Male

DRUGS (1)
  1. HYRIMOZ [Suspect]
     Active Substance: ADALIMUMAB-ADAZ
     Indication: Ankylosing spondylitis
     Dosage: 40 MG, Q2W
     Route: 065
     Dates: start: 202008, end: 20220328

REACTIONS (6)
  - IgA nephropathy [Unknown]
  - Proteinuria [Unknown]
  - Nephrotic syndrome [Not Recovered/Not Resolved]
  - Haematuria [Not Recovered/Not Resolved]
  - C3 glomerulopathy [Unknown]
  - Kidney fibrosis [Unknown]

NARRATIVE: CASE EVENT DATE: 20211101
